FAERS Safety Report 6905787-1 (Version None)
Quarter: 2010Q3

REPORT INFORMATION
  Report Type: 
  Country: None (occurrence: None)
  Receive Date: 20100730
  Receipt Date: 20100721
  Transmission Date: 20110219
  Serious: Yes (Hospitalization)
  Sender: FDA-Public Use
  Company Number: 2010US002878

PATIENT
  Age: 64 Month
  Sex: Male
  Weight: 77 kg

DRUGS (1)
  1. PROGRAF [Suspect]
     Indication: LUNG TRANSPLANT
     Dosage: 2.0 MG, UID/QD, ORAL
     Route: 048
     Dates: start: 20010901

REACTIONS (1)
  - HAEMOPTYSIS [None]
